FAERS Safety Report 5894071-3 (Version None)
Quarter: 2008Q3

REPORT INFORMATION
  Report Type: 
  Country: None (occurrence: None)
  Receive Date: 20080922
  Receipt Date: 20080909
  Transmission Date: 20090109
  Serious: Yes (Hospitalization)
  Sender: FDA-Public Use
  Company Number: WAES 0809USA01708

PATIENT
  Age: 79 Year
  Sex: Female
  Weight: 63.9572 kg

DRUGS (11)
  1. CAP VORINOSTAT UNK [Suspect]
     Indication: ACUTE MYELOID LEUKAEMIA
  2. INFUSION (FORM) DECITABINE 33.8 MG [Suspect]
     Indication: ACUTE MYELOID LEUKAEMIA
     Dosage: 33.8 MG/DAILY/IV
     Route: 042
     Dates: start: 20080827, end: 20080831
  3. LOPRESSOR [Concomitant]
  4. ALLOPURINOL [Concomitant]
  5. CHLORHEXIDINE GLUCONATE [Concomitant]
  6. HYDROCHLOROTHIAZIDE [Concomitant]
  7. HYDROXYUREA [Concomitant]
  8. LEVOTHYROXINE SODIUM [Concomitant]
  9. ONDANSETRON [Concomitant]
  10. PANTOPRAZOLE SODIUM [Concomitant]
  11. POTASSIUM PHOSPHATE, DIBASIC [Concomitant]

REACTIONS (6)
  - FEBRILE NEUTROPENIA [None]
  - HIATUS HERNIA [None]
  - HYDRONEPHROSIS [None]
  - LOBAR PNEUMONIA [None]
  - NEPHROLITHIASIS [None]
  - PERICARDIAL EFFUSION [None]
